FAERS Safety Report 9120555 (Version 1)
Quarter: 2013Q1

REPORT INFORMATION
  Report Type: Spontaneous
  Country: US (occurrence: US)
  Receive Date: 20130226
  Receipt Date: 20130226
  Transmission Date: 20140127
  Serious: No
  Sender: FDA-Public Use
  Company Number: US-009507513-1302USA011515

PATIENT
  Sex: Male

DRUGS (5)
  1. LOSARTAN POTASSIUM [Suspect]
     Indication: BLOOD PRESSURE
     Dosage: 100 MG, QD
     Route: 048
     Dates: start: 201102
  2. HYDROCHLOROTHIAZIDE [Concomitant]
  3. LEVATOL [Concomitant]
  4. PROSCAR [Concomitant]
  5. AMLODIPINE [Concomitant]

REACTIONS (3)
  - Headache [Not Recovered/Not Resolved]
  - Nausea [Not Recovered/Not Resolved]
  - Cough [Not Recovered/Not Resolved]
